FAERS Safety Report 12530062 (Version 1)
Quarter: 2016Q3

REPORT INFORMATION
  Report Type: Spontaneous
  Country: US (occurrence: None)
  Receive Date: 20160705
  Receipt Date: 20160705
  Transmission Date: 20161109
  Serious: Yes (Life-Threatening)
  Sender: FDA-Public Use
  Company Number: None

PATIENT
  Age: 53 Year
  Sex: Male
  Weight: 79.38 kg

DRUGS (1)
  1. REPATHA [Suspect]
     Active Substance: EVOLOCUMAB
     Indication: DYSLIPIDAEMIA
     Route: 058
     Dates: start: 20160617

REACTIONS (10)
  - Myalgia [None]
  - Dysphagia [None]
  - Rash macular [None]
  - Dyspnoea [None]
  - Paranasal sinus hypersecretion [None]
  - Cough [None]
  - Stomatitis [None]
  - Urticaria [None]
  - Lip swelling [None]
  - Fatigue [None]

NARRATIVE: CASE EVENT DATE: 20160617
